FAERS Safety Report 7341165-1 (Version None)
Quarter: 2011Q1

REPORT INFORMATION
  Report Type: 
  Country: None (occurrence: None)
  Receive Date: 20110309
  Receipt Date: 20110228
  Transmission Date: 20110831
  Serious: Yes (Hospitalization)
  Sender: FDA-Public Use
  Company Number: B0691082A

PATIENT
  Sex: Male

DRUGS (3)
  1. RISPERDAL [Concomitant]
     Indication: AGITATION
     Dosage: 1MG PER DAY
     Route: 048
     Dates: start: 20080903
  2. DEPAKENE [Concomitant]
     Indication: EPILEPSY
     Route: 048
     Dates: start: 20081201
  3. LAMICTAL [Suspect]
     Route: 048
     Dates: start: 20100623, end: 20101223

REACTIONS (2)
  - HYPONATRAEMIA [None]
  - CONVULSION [None]
